FAERS Safety Report 11992326 (Version 2)
Quarter: 2016Q1

REPORT INFORMATION
  Report Type: Spontaneous
  Country: US (occurrence: US)
  Receive Date: 20160203
  Receipt Date: 20160222
  Transmission Date: 20160526
  Serious: No
  Sender: FDA-Public Use
  Company Number: US-JNJFOC-20160109244

PATIENT
  Age: 5 Year
  Sex: Male

DRUGS (2)
  1. CHILDRENS TYLENOL [Suspect]
     Active Substance: ACETAMINOPHEN
     Indication: CONCUSSION
     Route: 048
  2. CHILDRENS TYLENOL [Suspect]
     Active Substance: ACETAMINOPHEN
     Indication: CONCUSSION
     Route: 048

REACTIONS (3)
  - Off label use [Unknown]
  - Drug prescribing error [Unknown]
  - Product use issue [Unknown]
